FAERS Safety Report 6347383-3 (Version None)
Quarter: 2009Q3

REPORT INFORMATION
  Report Type: 
  Country: None (occurrence: None)
  Receive Date: 20090910
  Receipt Date: 20090901
  Transmission Date: 20100115
  Serious: Yes (Life-Threatening)
  Sender: FDA-Public Use
  Company Number: NO-ASTRAZENECA-2009SE11865

PATIENT
  Age: 28 Year
  Sex: Male

DRUGS (2)
  1. PROPOFOL [Suspect]
     Indication: SEDATIVE THERAPY
     Dosage: 50 MG
     Route: 042
     Dates: start: 20090327, end: 20090327
  2. XYLOCAINE [Concomitant]
     Dosage: 150 MG
     Route: 051
     Dates: start: 20090327, end: 20090327

REACTIONS (4)
  - DYSPNOEA [None]
  - OXYGEN SATURATION DECREASED [None]
  - TACHYPNOEA [None]
  - URTICARIA [None]
